FAERS Safety Report 22376995 (Version 1)
Quarter: 2023Q2

REPORT INFORMATION
  Report Type: Spontaneous
  Country: US (occurrence: US)
  Receive Date: 20230529
  Receipt Date: 20230529
  Transmission Date: 20230722
  Serious: Yes (Hospitalization)
  Sender: FDA-Public Use
  Company Number: US-BoehringerIngelheim-2023-BI-239307

PATIENT
  Age: 46 Year
  Sex: Male

DRUGS (1)
  1. JARDIANCE [Suspect]
     Active Substance: EMPAGLIFLOZIN
     Indication: Type 2 diabetes mellitus
     Dates: start: 202203

REACTIONS (4)
  - Heart valve replacement [Unknown]
  - Hydrocele [Not Recovered/Not Resolved]
  - Scrotal infection [Not Recovered/Not Resolved]
  - Scrotal injury [Not Recovered/Not Resolved]

NARRATIVE: CASE EVENT DATE: 20230201
